FAERS Safety Report 7271763-5 (Version None)
Quarter: 2011Q1

REPORT INFORMATION
  Report Type: 
  Country: None (occurrence: None)
  Receive Date: 20110131
  Receipt Date: 20110131
  Transmission Date: 20110831
  Serious: Yes (Hospitalization)
  Sender: FDA-Public Use
  Company Number: None

PATIENT
  Sex: Female
  Weight: 49.9 kg

DRUGS (3)
  1. TAXOL [Suspect]
     Dosage: 600 MG
     Dates: end: 20101214
  2. CARBOPLATIN [Suspect]
     Dosage: 1127.6 MG
     Dates: end: 20101214
  3. ERBITUX [Suspect]
     Dosage: 1575 MG
     Dates: end: 20101227

REACTIONS (3)
  - SPINAL CORD COMPRESSION [None]
  - HAEMOGLOBIN DECREASED [None]
  - METASTASES TO SPINE [None]
